FAERS Safety Report 13711759 (Version 2)
Quarter: 2017Q3

REPORT INFORMATION
  Report Type: Spontaneous
  Country: US (occurrence: US)
  Receive Date: 20170703
  Receipt Date: 20170823
  Transmission Date: 20171127
  Serious: Yes (Other)
  Sender: FDA-Public Use
  Company Number: US-SA-2017SA114505

PATIENT
  Age: 20 Year
  Sex: Male

DRUGS (4)
  1. DUPIXENT [Suspect]
     Active Substance: DUPILUMAB
     Indication: DERMATITIS ATOPIC
     Route: 065
     Dates: start: 2017
  2. CYCLOSPORINE. [Concomitant]
     Active Substance: CYCLOSPORINE
  3. METHOTREXATE. [Concomitant]
     Active Substance: METHOTREXATE
  4. DUPIXENT [Suspect]
     Active Substance: DUPILUMAB
     Indication: DERMATITIS ATOPIC
     Dosage: TWO DOSES OF THE LOADING DOSE
     Route: 065
     Dates: start: 20170628, end: 20170628

REACTIONS (5)
  - Rectal haemorrhage [Unknown]
  - Haemoglobin decreased [Unknown]
  - Blood albumin decreased [Unknown]
  - Red blood cell sedimentation rate increased [Unknown]
  - Conjunctivitis [Not Recovered/Not Resolved]
